FAERS Safety Report 19397068 (Version 2)
Quarter: 2021Q3

REPORT INFORMATION
  Report Type: Spontaneous
  Country: AT (occurrence: AT)
  Receive Date: 20210610
  Receipt Date: 20210903
  Transmission Date: 20211014
  Serious: Yes (Other)
  Sender: FDA-Public Use
  Company Number: AT-JNJFOC-20210615119

PATIENT
  Age: 3 Decade
  Sex: Female

DRUGS (1)
  1. STELARA [Suspect]
     Active Substance: USTEKINUMAB
     Indication: COLITIS ULCERATIVE
     Dosage: SINCE EARLY 2020
     Route: 058
     Dates: start: 2020

REACTIONS (2)
  - Colitis ulcerative [Recovered/Resolved]
  - Cytomegalovirus infection reactivation [Recovered/Resolved]

NARRATIVE: CASE EVENT DATE: 202006
